FAERS Safety Report 10419835 (Version 2)
Quarter: 2014Q4

REPORT INFORMATION
  Report Type: Spontaneous
  Country: US (occurrence: None)
  Receive Date: 20140625
  Receipt Date: 20141002
  Transmission Date: 20150528
  Serious: Yes (Death, Hospitalization)
  Sender: FDA-Public Use
  Company Number: PHEH2014US008416

PATIENT
  Age: 74 Year
  Sex: Female
  Weight: 87 kg

DRUGS (2)
  1. AFINITOR [Suspect]
     Active Substance: EVEROLIMUS
     Indication: BREAST CANCER METASTATIC
     Route: 048
     Dates: start: 20140115, end: 20140129
  2. AROMASIN [Concomitant]
     Active Substance: EXEMESTANE
     Indication: BREAST CANCER METASTATIC
     Route: 048
     Dates: start: 20140115, end: 20140129

REACTIONS (2)
  - Renal failure [None]
  - Urine output decreased [None]

NARRATIVE: CASE EVENT DATE: 20140129
